FAERS Safety Report 7590176-X (Version None)
Quarter: 2011Q3

REPORT INFORMATION
  Report Type: 
  Country: None (occurrence: None)
  Receive Date: 20110705
  Receipt Date: 20110621
  Transmission Date: 20111222
  Serious: Yes (Hospitalization)
  Sender: FDA-Public Use
  Company Number: US-JUTA GMBH-2011-09168

PATIENT
  Age: 94 Year
  Sex: Female
  Weight: 56.689 kg

DRUGS (9)
  1. FERROUS SULFATE TAB [Concomitant]
     Indication: PRODUCT USED FOR UNKNOWN INDICATION
     Dosage: UNK
     Route: 065
  2. DILTIAZEM HCL [Suspect]
     Indication: BLOOD PRESSURE
     Dosage: TOOK 1 DOSE AT 12:30 PM
     Route: 048
     Dates: start: 20110618, end: 20110618
  3. DILTIAZEM HCL [Suspect]
     Indication: BLOOD PRESSURE
     Dosage: 1 TABLET IN THE MORNING WITH BREAKFAST
     Route: 048
  4. ATENOLOL [Suspect]
     Indication: BLOOD PRESSURE
     Dosage: 1 TABLET DAILY IN THE EVENING
     Route: 048
  5. ASPIRIN [Concomitant]
     Indication: PRODUCT USED FOR UNKNOWN INDICATION
     Dosage: DAILY
     Route: 048
  6. LOPID [Concomitant]
     Indication: PRODUCT USED FOR UNKNOWN INDICATION
     Dosage: UNK
     Route: 065
  7. CALCIUM D                          /00944201/ [Concomitant]
     Indication: PRODUCT USED FOR UNKNOWN INDICATION
     Dosage: DAILY
     Route: 048
  8. DIOVAN [Suspect]
     Indication: BLOOD PRESSURE
     Dosage: 1 TABLET AT 12:30PM DAILY
     Route: 048
  9. LIPASE [Concomitant]
     Indication: PANCREATIC DISORDER
     Dosage: DAILY
     Route: 048

REACTIONS (20)
  - RENAL DISORDER [None]
  - NAUSEA [None]
  - HEART RATE DECREASED [None]
  - FATIGUE [None]
  - FEELING COLD [None]
  - BLOOD PRESSURE INCREASED [None]
  - HYPERHIDROSIS [None]
  - HEADACHE [None]
  - BRADYCARDIA [None]
  - RENAL IMPAIRMENT [None]
  - DEHYDRATION [None]
  - PYREXIA [None]
  - OVERDOSE [None]
  - TREMOR [None]
  - UNRESPONSIVE TO STIMULI [None]
  - SPEECH DISORDER [None]
  - WRONG DRUG ADMINISTERED [None]
  - VOMITING [None]
  - DRUG INEFFECTIVE [None]
  - BLOOD GLUCOSE INCREASED [None]
